FAERS Safety Report 20856593 (Version 2)
Quarter: 2022Q2

REPORT INFORMATION
  Report Type: Spontaneous
  Country: US (occurrence: US)
  Receive Date: 20220520
  Receipt Date: 20220616
  Transmission Date: 20220720
  Serious: No
  Sender: FDA-Public Use
  Company Number: US-SA-SAC20220511001601

PATIENT
  Sex: Female

DRUGS (11)
  1. DUPIXENT [Suspect]
     Active Substance: DUPILUMAB
     Indication: Asthma
     Dosage: 200 MG, QOW
     Route: 058
     Dates: start: 20210722
  2. AZITHROMYCIN [Concomitant]
     Active Substance: AZITHROMYCIN
  3. FENOFIBRATE [Concomitant]
     Active Substance: FENOFIBRATE
     Dosage: UNK
  4. FLUCONAZOLE [Concomitant]
     Active Substance: FLUCONAZOLE
  5. IBUPROFEN [Concomitant]
     Active Substance: IBUPROFEN
     Dosage: 4MG
  6. MONTELUKAST SODIUM [Concomitant]
     Active Substance: MONTELUKAST SODIUM
     Indication: Asthma
     Dosage: 5MG
  7. PREDNISONE [Concomitant]
     Active Substance: PREDNISONE
     Indication: Asthma
     Dosage: 5MG
  8. ROSUVASTATIN [Concomitant]
     Active Substance: ROSUVASTATIN
     Dosage: 25MG
  9. SERTRALINE [Concomitant]
     Active Substance: SERTRALINE HYDROCHLORIDE
     Dosage: 25MG
  10. SYMBICORT [Concomitant]
     Active Substance: BUDESONIDE\FORMOTEROL FUMARATE DIHYDRATE
     Indication: Asthma
     Dosage: SYMBICORT AER 160-4.5
  11. HYDROCHLOROTHIAZIDE\VALSARTAN [Concomitant]
     Active Substance: HYDROCHLOROTHIAZIDE\VALSARTAN
     Dosage: TAB 160-12.5

REACTIONS (4)
  - Aphthous ulcer [Not Recovered/Not Resolved]
  - Gingival disorder [Not Recovered/Not Resolved]
  - Asthma [Not Recovered/Not Resolved]
  - Impaired quality of life [Not Recovered/Not Resolved]
